FAERS Safety Report 5128589-8 (Version None)
Quarter: 2006Q4

REPORT INFORMATION
  Report Type: 
  Country: None (occurrence: None)
  Receive Date: 20061017
  Receipt Date: 20061006
  Transmission Date: 20070319
  Serious: Yes (Other)
  Sender: FDA-Public Use
  Company Number: NL-GLAXOSMITHKLINE-B0442279A

PATIENT

DRUGS (2)
  1. ROSIGLITAZONE [Suspect]
     Indication: DRUG USE FOR UNKNOWN INDICATION
     Route: 065
     Dates: start: 20030101
  2. INSULIN [Concomitant]

REACTIONS (2)
  - CONDITION AGGRAVATED [None]
  - HEPATIC CIRRHOSIS [None]
